FAERS Safety Report 6818431-9 (Version None)
Quarter: 2010Q3

REPORT INFORMATION
  Report Type: 
  Country: None (occurrence: None)
  Receive Date: 20100706
  Receipt Date: 20080208
  Transmission Date: 20110219
  Serious: No
  Sender: FDA-Public Use
  Company Number: US-PFIZER INC-2008013122

PATIENT
  Sex: Male
  Weight: 109.1 kg

DRUGS (5)
  1. ZITHROMAX [Suspect]
     Indication: OROPHARYNGEAL PAIN
     Dates: start: 20080101, end: 20080101
  2. DEXAMETHASONE [Concomitant]
  3. PEN-VEE K [Concomitant]
  4. HERBAL PREPARATION [Concomitant]
  5. HOMEOPATIC PREPARATION [Concomitant]

REACTIONS (4)
  - GINGIVITIS [None]
  - GLOSSITIS [None]
  - MALAISE [None]
  - STOMATITIS [None]
